FAERS Safety Report 16909687 (Version 1)
Quarter: 2019Q4

REPORT INFORMATION
  Report Type: Report from Study
  Country: US (occurrence: US)
  Receive Date: 20191011
  Receipt Date: 20191011
  Transmission Date: 20200122
  Serious: Yes (Hospitalization)
  Sender: FDA-Public Use
  Company Number: US-ACTELION-A-NJ2019-196735

PATIENT
  Sex: Female
  Weight: 95.24 kg

DRUGS (4)
  1. SILDENAFIL CITRATE. [Concomitant]
     Active Substance: SILDENAFIL CITRATE
  2. UPTRAVI [Suspect]
     Active Substance: SELEXIPAG
     Indication: PULMONARY ARTERIAL HYPERTENSION
     Dosage: 800 MCG, BID
     Route: 048
  3. AMBRISENTAN [Concomitant]
     Active Substance: AMBRISENTAN
  4. WARFARIN [Concomitant]
     Active Substance: WARFARIN

REACTIONS (1)
  - Pulmonary endarterectomy [Unknown]
